FAERS Safety Report 12696849 (Version 1)
Quarter: 2016Q3

REPORT INFORMATION
  Report Type: Spontaneous
  Country: US (occurrence: None)
  Receive Date: 20160829
  Receipt Date: 20160829
  Transmission Date: 20161109
  Serious: Yes (Life-Threatening, Hospitalization)
  Sender: FDA-Public Use
  Company Number: None

PATIENT
  Age: 39 Year
  Sex: Female
  Weight: 68.04 kg

DRUGS (1)
  1. LEVOFLAXACIN 750MG TABLET, 750MG AUROBINDO PHARMACY [Suspect]
     Active Substance: LEVOFLOXACIN
     Indication: PNEUMONIA
     Route: 048
     Dates: start: 20130228, end: 20130303

REACTIONS (8)
  - Pruritus [None]
  - Lip swelling [None]
  - Burning sensation [None]
  - Urticaria [None]
  - Hypotension [None]
  - Loss of consciousness [None]
  - Swollen tongue [None]
  - Paraesthesia [None]

NARRATIVE: CASE EVENT DATE: 20130303
